FAERS Safety Report 13192816 (Version 1)
Quarter: 2017Q1

REPORT INFORMATION
  Report Type: Spontaneous
  Country: PL (occurrence: PL)
  Receive Date: 20170207
  Receipt Date: 20170207
  Transmission Date: 20170428
  Serious: Yes (Other)
  Sender: FDA-Public Use
  Company Number: PL-MYLANLABS-2017M1007354

PATIENT

DRUGS (1)
  1. KLACID [Suspect]
     Active Substance: CLARITHROMYCIN
     Indication: ARTHRITIS
     Dosage: UNK
     Dates: start: 20170117

REACTIONS (4)
  - Burning sensation [Unknown]
  - Asphyxia [Unknown]
  - Cough [Unknown]
  - Abdominal discomfort [Unknown]
